FAERS Safety Report 11319357 (Version 1)
Quarter: 2015Q3

REPORT INFORMATION
  Report Type: Spontaneous
  Country: US (occurrence: US)
  Receive Date: 20150729
  Receipt Date: 20150729
  Transmission Date: 20151125
  Serious: No
  Sender: FDA-Public Use
  Company Number: US-AMGEN-USASP2015075348

PATIENT
  Sex: Male

DRUGS (1)
  1. ENBREL [Suspect]
     Active Substance: ETANERCEPT
     Indication: PSORIASIS
     Dosage: 50 MG, ONCE A WEEK
     Route: 065
     Dates: start: 201401

REACTIONS (5)
  - Pain in extremity [Recovering/Resolving]
  - Myalgia [Unknown]
  - Weight bearing difficulty [Recovering/Resolving]
  - Gait disturbance [Recovering/Resolving]
  - Muscular weakness [Unknown]

NARRATIVE: CASE EVENT DATE: 2015
